FAERS Safety Report 6947239-9 (Version None)
Quarter: 2010Q3

REPORT INFORMATION
  Report Type: 
  Country: None (occurrence: None)
  Receive Date: 20100825
  Receipt Date: 20100809
  Transmission Date: 20110219
  Serious: Yes (Hospitalization)
  Sender: FDA-Public Use
  Company Number: DSA_43534_2010

PATIENT
  Age: 78 Year
  Sex: Female

DRUGS (6)
  1. ENALAPRIL MALEATE [Suspect]
     Indication: HYPERTENSION
     Dosage: (10 MG QD ORAL)
     Route: 048
     Dates: start: 20080601, end: 20100405
  2. COUMADIN [Suspect]
     Indication: ATRIAL FIBRILLATION
     Dosage: (5 MG, AS NEEDED ORAL)
     Route: 048
     Dates: start: 20080619
  3. ALDACTONE [Suspect]
     Indication: HYPERTENSION
     Dosage: (100 MG QD ORAL)
     Route: 048
     Dates: start: 20080601, end: 20100405
  4. LASIX [Suspect]
     Indication: PRODUCT USED FOR UNKNOWN INDICATION
     Dosage: (100 MG QD ORAL)
     Route: 048
     Dates: start: 20080801, end: 20100405
  5. ZYLORIC [Concomitant]
  6. EUTIROX [Concomitant]

REACTIONS (3)
  - ACTIVATED PARTIAL THROMBOPLASTIN TIME PROLONGED [None]
  - PETECHIAE [None]
  - RENAL FAILURE [None]
